FAERS Safety Report 7202272-7 (Version None)
Quarter: 2010Q4

REPORT INFORMATION
  Report Type: 
  Country: None (occurrence: None)
  Receive Date: 20101229
  Receipt Date: 20101228
  Transmission Date: 20110411
  Serious: Yes (Hospitalization)
  Sender: FDA-Public Use
  Company Number: CO-B.I. PHARMACEUTICALS,INC./RIDGEFIELD-2010-RA-00468RA

PATIENT
  Sex: Male
  Weight: 90 kg

DRUGS (5)
  1. DABIGATRAN ETEXILATE [Suspect]
     Indication: THROMBOSIS PROPHYLAXIS
     Route: 048
  2. ATORVASTATIN CALCIUM [Concomitant]
     Indication: HYPERCHOLESTEROLAEMIA
     Route: 048
  3. LEVOTHYROXINE [Concomitant]
     Indication: HYPOTHYROIDISM
     Route: 048
  4. CALCIUM [Concomitant]
     Indication: HYPOPARATHYROIDISM
     Route: 048
  5. CALCITRIOL [Concomitant]
     Indication: HYPOPARATHYROIDISM
     Route: 048

REACTIONS (1)
  - DEEP VEIN THROMBOSIS [None]
